FAERS Safety Report 24346851 (Version 2)
Quarter: 2024Q3

REPORT INFORMATION
  Report Type: Spontaneous
  Country: IE (occurrence: IE)
  Receive Date: 20240921
  Receipt Date: 20240924
  Transmission Date: 20241016
  Serious: Yes (Other)
  Sender: ROCHE
  Company Number: IE-ROCHE-10000081979

PATIENT
  Age: 90 Year
  Sex: Female

DRUGS (1)
  1. VABYSMO [Suspect]
     Active Substance: FARICIMAB\FARICIMAB-SVOA
     Indication: Product used for unknown indication
     Dosage: LAST VABYSMO INJECTION END OF JUNE IN 1 EYE
     Route: 065

REACTIONS (2)
  - Angle closure glaucoma [Unknown]
  - Blindness [Unknown]
